FAERS Safety Report 5456244-3 (Version None)
Quarter: 2007Q3

REPORT INFORMATION
  Report Type: 
  Country: None (occurrence: None)
  Receive Date: 20070918
  Receipt Date: 20070228
  Transmission Date: 20080115
  Serious: Yes (Hospitalization, Other)
  Sender: FDA-Public Use
  Company Number: US-ASTRAZENECA-2006UW23623

PATIENT
  Age: 39 Year
  Sex: Female
  Weight: 49.1 kg

DRUGS (6)
  1. SEROQUEL [Suspect]
     Indication: BIPOLAR DISORDER
     Route: 048
  2. ABILIFY [Concomitant]
  3. RISPERDAL [Concomitant]
  4. THORAZINE [Concomitant]
  5. ZYPREXA [Concomitant]
  6. MELLARIL [Concomitant]

REACTIONS (9)
  - ABDOMINAL PAIN [None]
  - DEPRESSION [None]
  - DIABETES MELLITUS [None]
  - EXTRAPYRAMIDAL DISORDER [None]
  - HYPERTENSION [None]
  - OVERDOSE [None]
  - SUICIDAL BEHAVIOUR [None]
  - TARDIVE DYSKINESIA [None]
  - VOMITING [None]
